FAERS Safety Report 7922767-8 (Version None)
Quarter: 2011Q4

REPORT INFORMATION
  Report Type: 
  Country: None (occurrence: None)
  Receive Date: 20111117
  Receipt Date: 20110906
  Transmission Date: 20120403
  Serious: No
  Sender: FDA-Public Use
  Company Number: US-ALLERGAN-1111865US

PATIENT
  Age: 67 Year
  Sex: Female

DRUGS (1)
  1. COMBIGAN [Suspect]
     Indication: INTRAOCULAR PRESSURE INCREASED
     Dosage: 1 GTT, BID
     Route: 047
     Dates: start: 20110501, end: 20110801

REACTIONS (6)
  - MADAROSIS [None]
  - EYELID OEDEMA [None]
  - EYE IRRITATION [None]
  - EYELID EXFOLIATION [None]
  - EYE PAIN [None]
  - SKIN ULCER [None]
